FAERS Safety Report 4559118-5 (Version None)
Quarter: 2005Q1

REPORT INFORMATION
  Report Type: 
  Country: None (occurrence: None)
  Receive Date: 20050121
  Receipt Date: 20050121
  Transmission Date: 20050727
  Serious: Yes (Other)
  Sender: FDA-Public Use
  Company Number: None

PATIENT
  Sex: Female

DRUGS (7)
  1. OXYCONTIN [Suspect]
     Indication: BACK PAIN
     Dosage: 80MG  1 BID  ORAL
     Route: 048
  2. OXYCONTIN [Suspect]
     Indication: MIGRAINE
     Dosage: 80MG  1 BID  ORAL
     Route: 048
  3. OXYCONTIN [Suspect]
     Indication: RADICULOPATHY
     Dosage: 80MG  1 BID  ORAL
     Route: 048
  4. DOLOPHINE [Concomitant]
  5. MS CONTIN [Concomitant]
  6. DILAUDID [Concomitant]
  7. DEMEROL [Concomitant]

REACTIONS (4)
  - DRUG EFFECT DECREASED [None]
  - DYSPEPSIA [None]
  - NAUSEA [None]
  - PHARMACEUTICAL PRODUCT COMPLAINT [None]
